FAERS Safety Report 9268125 (Version 1)
Quarter: 2013Q2

REPORT INFORMATION
  Report Type: Spontaneous
  Country: US (occurrence: US)
  Receive Date: 20130502
  Receipt Date: 20130502
  Transmission Date: 20140414
  Serious: Yes (Hospitalization, Other)
  Sender: FDA-Public Use
  Company Number: US-ALEXION-A201201399

PATIENT
  Age: 45 Year
  Sex: Female
  Weight: 78.5 kg

DRUGS (21)
  1. SOLIRIS 300MG [Suspect]
     Indication: PAROXYSMAL NOCTURNAL HAEMOGLOBINURIA
     Dosage: 900 MG, Q2W
     Route: 042
     Dates: start: 20090325
  2. SOLIRIS 300MG [Suspect]
     Dosage: 600 MG, Q2W
     Route: 042
     Dates: start: 20081113, end: 20090325
  3. SOLIRIS 300MG [Suspect]
     Dosage: 900 MG, QW
     Route: 042
     Dates: start: 20080519, end: 20081113
  4. DESFERAL [Concomitant]
     Indication: IRON OVERLOAD
     Dosage: UNK
     Route: 048
  5. ADVAIR [Concomitant]
     Indication: ASTHMA
     Dosage: UNK
  6. ALBUTEROL [Concomitant]
     Indication: ASTHMA
     Dosage: UNK
  7. ASA [Concomitant]
     Indication: CORONARY ARTERY DISEASE
     Dosage: UNK
     Route: 048
  8. BENADRYL [Concomitant]
     Indication: PRODUCT USED FOR UNKNOWN INDICATION
     Dosage: UNK
     Route: 048
  9. DILAUDID [Concomitant]
     Indication: PAIN
     Dosage: 4 MG, PRN Q4-6H 1 TAB
     Route: 048
  10. FOLIC ACID [Concomitant]
     Indication: FOLATE DEFICIENCY
     Dosage: UNK
     Route: 048
  11. LOVENOX [Concomitant]
     Indication: DEEP VEIN THROMBOSIS
     Dosage: 80 MG, BID
     Route: 058
     Dates: end: 20120802
  12. MULTIVITAMIN [Concomitant]
     Dosage: UNK
     Route: 048
  13. PAXIL [Concomitant]
     Dosage: UNK
     Route: 048
  14. PHENERGAN [Concomitant]
     Indication: NAUSEA
     Dosage: UNK
     Route: 030
  15. RESTORIL [Concomitant]
     Indication: SLEEP DISORDER
     Dosage: UNK
     Route: 048
  16. SPIRIVA [Concomitant]
     Indication: ASTHMA
     Dosage: UNK
  17. SYMBICORT [Concomitant]
     Indication: ASTHMA
     Dosage: 80-4.5 MCG
  18. TRAMADOL [Concomitant]
     Indication: PAIN
     Dosage: 50 MG, TID
     Route: 060
  19. ARANESP [Concomitant]
     Indication: ANAEMIA
     Dosage: 200 ?G, Q2W
     Route: 060
  20. ARANESP [Concomitant]
     Indication: HAEMOGLOBIN DECREASED
  21. COUMADIN [Concomitant]
     Dosage: UNK
     Dates: start: 20120802

REACTIONS (3)
  - Renal failure acute [Recovering/Resolving]
  - Dehydration [Recovering/Resolving]
  - Haemoglobin decreased [Recovered/Resolved]
